FAERS Safety Report 8805403 (Version 1)
Quarter: 2012Q4

REPORT INFORMATION
  Report Type: 
  Country: PH (occurrence: PH)
  Receive Date: 20120924
  Receipt Date: 20120924
  Transmission Date: 20130627
  Serious: Yes (Other)
  Sender: FDA-Public Use
  Company Number: PHHY2005PH007380

PATIENT

DRUGS (1)
  1. GLIVEC [Suspect]

REACTIONS (2)
  - Acute leukaemia [Unknown]
  - Drug ineffective [Unknown]
